FAERS Safety Report 23660698 (Version 2)
Quarter: 2024Q2

REPORT INFORMATION
  Report Type: Spontaneous
  Country: IL (occurrence: IL)
  Receive Date: 20240322
  Receipt Date: 20240403
  Transmission Date: 20240716
  Serious: Yes (Life-Threatening, Hospitalization, Other)
  Sender: FDA-Public Use
  Company Number: None

PATIENT
  Age: 39 Year
  Sex: Female

DRUGS (4)
  1. MYCOPHENOLATE MOFETIL [Suspect]
     Active Substance: MYCOPHENOLATE MOFETIL
     Indication: Immunosuppressant drug therapy
     Dosage: UNK
     Route: 065
  2. TACROLIMUS [Suspect]
     Active Substance: TACROLIMUS
     Indication: Immunosuppressant drug therapy
     Dosage: UNK
     Route: 065
  3. SULFAMETHOXAZOLE\TRIMETHOPRIM [Concomitant]
     Active Substance: SULFAMETHOXAZOLE\TRIMETHOPRIM
     Indication: Product used for unknown indication
     Dosage: UNK
     Route: 065
  4. VALGANCICLOVIR [Concomitant]
     Active Substance: VALGANCICLOVIR
     Indication: Product used for unknown indication
     Dosage: UNK
     Route: 065

REACTIONS (18)
  - Peripheral ischaemia [Unknown]
  - Vasculitis [Unknown]
  - Wound haematoma [Unknown]
  - Arterial haemorrhage [Unknown]
  - Intra-abdominal haematoma [Unknown]
  - Retroperitoneal haematoma [Unknown]
  - Shock haemorrhagic [Unknown]
  - Iliac artery perforation [Unknown]
  - Necrosis of artery [Unknown]
  - Arteritis infective [Unknown]
  - Disseminated aspergillosis [Unknown]
  - Escherichia infection [Unknown]
  - Enterococcal infection [Unknown]
  - Klebsiella infection [Unknown]
  - Pathogen resistance [Unknown]
  - Renal graft infection [Unknown]
  - Stenotrophomonas infection [Unknown]
  - Aspergillus infection [Unknown]
